FAERS Safety Report 4963673-0 (Version None)
Quarter: 2006Q1

REPORT INFORMATION
  Report Type: 
  Country: None (occurrence: None)
  Receive Date: 20060330
  Receipt Date: 20060315
  Transmission Date: 20060701
  Serious: Yes (Hospitalization)
  Sender: FDA-Public Use
  Company Number: 2006-00472

PATIENT
  Age: 62 Year
  Sex: Female
  Weight: 80.5 kg

DRUGS (3)
  1. VELCADE [Suspect]
     Indication: MULTIPLE MYELOMA
     Dosage: 2.50 MG, 2/WEEK, INTRAVENOUS
     Route: 042
     Dates: start: 20051125
  2. DOXIL [Suspect]
     Dosage: 30.00 MG/M2, INTRAVENOUS
     Route: 042
     Dates: start: 20051125, end: 20060220
  3. ENALAPRIL MALEATE [Concomitant]

REACTIONS (5)
  - ASTHENIA [None]
  - FURUNCLE [None]
  - NASOPHARYNGITIS [None]
  - STAPHYLOCOCCAL INFECTION [None]
  - SYNCOPE [None]
